FAERS Safety Report 7826070-6 (Version None)
Quarter: 2011Q4

REPORT INFORMATION
  Report Type: 
  Country: None (occurrence: None)
  Receive Date: 20111019
  Receipt Date: 20111010
  Transmission Date: 20120403
  Serious: Yes (Hospitalization)
  Sender: FDA-Public Use
  Company Number: US-ASTRAZENECA-2011SE61000

PATIENT
  Age: 2 Year
  Sex: Female

DRUGS (1)
  1. PULMICORT [Suspect]
     Route: 055

REACTIONS (4)
  - HEPATIC INFECTION [None]
  - LUNG INFECTION [None]
  - CONGENITAL APLASTIC ANAEMIA [None]
  - GRAFT VERSUS HOST DISEASE IN LUNG [None]
